FAERS Safety Report 5631695-2 (Version None)
Quarter: 2008Q1

REPORT INFORMATION
  Report Type: 
  Country: None (occurrence: None)
  Receive Date: 20080220
  Receipt Date: 20080212
  Transmission Date: 20080703
  Serious: Yes (Hospitalization)
  Sender: FDA-Public Use
  Company Number: FR-JNJFOC-20080202666

PATIENT
  Age: 57 Year
  Sex: Male

DRUGS (11)
  1. DURAGESIC-100 [Suspect]
     Indication: PAIN
     Route: 062
  2. ACTISKENAN [Suspect]
     Route: 048
  3. ACTISKENAN [Suspect]
     Indication: PAIN
     Route: 048
  4. SKENAN [Suspect]
     Indication: PAIN
     Route: 048
  5. ELISOR [Concomitant]
     Route: 065
  6. NEURONTIN [Concomitant]
     Route: 065
  7. DI ANTALVIC [Concomitant]
     Route: 065
  8. BACTRIM [Concomitant]
     Route: 065
  9. OFLOCET [Concomitant]
     Route: 065
  10. PLAVIX [Concomitant]
     Route: 065
  11. COTAREG [Concomitant]
     Route: 048

REACTIONS (3)
  - RENAL FAILURE ACUTE [None]
  - RHABDOMYOLYSIS [None]
  - SOMNOLENCE [None]
